FAERS Safety Report 6828761-2 (Version None)
Quarter: 2010Q3

REPORT INFORMATION
  Report Type: 
  Country: None (occurrence: None)
  Receive Date: 20100709
  Receipt Date: 20070220
  Transmission Date: 20110219
  Serious: No
  Sender: FDA-Public Use
  Company Number: US-PFIZER INC-2007014365

PATIENT
  Age: 48 Year
  Sex: Female
  Weight: 51.71 kg

DRUGS (1)
  1. CHANTIX [Suspect]
     Indication: SMOKING CESSATION THERAPY
     Dates: start: 20061201

REACTIONS (4)
  - CONSTIPATION [None]
  - HEADACHE [None]
  - INSOMNIA [None]
  - NIGHTMARE [None]
